FAERS Safety Report 24176948 (Version 1)
Quarter: 2024Q3

REPORT INFORMATION
  Report Type: Spontaneous
  Country: US (occurrence: US)
  Receive Date: 20240806
  Receipt Date: 20240806
  Transmission Date: 20241017
  Serious: Yes (Other)
  Sender: JOHNSON AND JOHNSON
  Company Number: US-JNJFOC-20240802169

PATIENT
  Age: 78 Year
  Sex: Female

DRUGS (15)
  1. STELARA [Suspect]
     Active Substance: USTEKINUMAB
     Indication: Crohn^s disease
     Route: 058
     Dates: start: 20150826
  2. ALDARA [Concomitant]
     Active Substance: IMIQUIMOD
  3. ALPRAZOLAM [Concomitant]
     Active Substance: ALPRAZOLAM
  4. AMOXICILLIN AND CLAVULANATE POTASSIUM [Concomitant]
     Active Substance: AMOXICILLIN\CLAVULANATE POTASSIUM
  5. AZATHIOPRINE [Concomitant]
     Active Substance: AZATHIOPRINE
  6. BUPROPION [Concomitant]
     Active Substance: BUPROPION
  7. METOPROLOL [Concomitant]
     Active Substance: METOPROLOL
  8. NASONEX [Concomitant]
     Active Substance: MOMETASONE FUROATE
  9. OXYCODONE [Concomitant]
     Active Substance: OXYCODONE
  10. METRONIDAZOLE [Concomitant]
     Active Substance: METRONIDAZOLE
  11. SALICYLIC ACID [Concomitant]
     Active Substance: SALICYLIC ACID
  12. SUCRALFATE [Concomitant]
     Active Substance: SUCRALFATE
  13. TESTOSTERONE [Concomitant]
     Active Substance: TESTOSTERONE
  14. LEXAPRO [Concomitant]
     Active Substance: ESCITALOPRAM OXALATE
  15. PENTASA [Concomitant]
     Active Substance: MESALAMINE

REACTIONS (3)
  - Crohn^s disease [Unknown]
  - Surgery [Unknown]
  - Off label use [Unknown]
